FAERS Safety Report 12576879 (Version 2)
Quarter: 2016Q3

REPORT INFORMATION
  Report Type: Spontaneous
  Country: US (occurrence: US)
  Receive Date: 20160720
  Receipt Date: 20160803
  Transmission Date: 20161109
  Serious: No
  Sender: FDA-Public Use
  Company Number: US-SHIRE-US201608972

PATIENT
  Age: 67 Year
  Sex: Male

DRUGS (1)
  1. LIALDA [Suspect]
     Active Substance: MESALAMINE
     Indication: COLITIS
     Dosage: 2.4 G (1.2 GRAMS X 2), 1X/DAY:QD
     Route: 048
     Dates: start: 20160707

REACTIONS (1)
  - Medication residue present [Unknown]

NARRATIVE: CASE EVENT DATE: 201607
